FAERS Safety Report 10494272 (Version 2)
Quarter: 2015Q1

REPORT INFORMATION
  Report Type: Spontaneous
  Country: US (occurrence: US)
  Receive Date: 20141003
  Receipt Date: 20150310
  Transmission Date: 20150720
  Serious: Yes (Hospitalization, Other)
  Sender: FDA-Public Use
  Company Number: US-GLAXOSMITHKLINE-A1090773A

PATIENT
  Age: 82 Year
  Sex: Male

DRUGS (1)
  1. AVODART [Suspect]
     Active Substance: DUTASTERIDE
     Indication: PRODUCT USED FOR UNKNOWN INDICATION
     Dosage: 0.5 MG CAPSULES. UNKNOWN DOSING.
     Route: 065

REACTIONS (5)
  - Fall [Unknown]
  - Asthenia [Unknown]
  - Occupational therapy [Unknown]
  - Abasia [Unknown]
  - Dehydration [Unknown]

NARRATIVE: CASE EVENT DATE: 201408
